FAERS Safety Report 11621513 (Version 1)
Quarter: 2015Q4

REPORT INFORMATION
  Report Type: Report from Study
  Country: CA (occurrence: CA)
  Receive Date: 20151013
  Receipt Date: 20151013
  Transmission Date: 20160304
  Serious: Yes (Other)
  Sender: FDA-Public Use
  Company Number: CA-ROCHE-1559428

PATIENT
  Age: 62 Year
  Sex: Female

DRUGS (14)
  1. IMMUNOGLOBULIN [Concomitant]
     Active Substance: HUMAN IMMUNOGLOBULIN G
     Route: 042
  2. VENTOLIN [Concomitant]
     Active Substance: ALBUTEROL SULFATE
  3. ADVAIR HFA [Concomitant]
     Active Substance: FLUTICASONE PROPIONATE\SALMETEROL XINAFOATE
  4. METHYLPREDNISOLONE. [Concomitant]
     Active Substance: METHYLPREDNISOLONE
     Indication: PREMEDICATION
     Route: 042
     Dates: start: 20150331
  5. AZITHROMYCIN [Concomitant]
     Active Substance: AZITHROMYCIN ANHYDROUS
     Indication: PROPHYLAXIS
  6. SPIRIVA [Concomitant]
     Active Substance: TIOTROPIUM BROMIDE MONOHYDRATE
  7. LYRICA [Concomitant]
     Active Substance: PREGABALIN
  8. DIPHENHYDRAMINE HCL [Concomitant]
     Active Substance: DIPHENHYDRAMINE HYDROCHLORIDE
     Indication: PREMEDICATION
     Route: 048
     Dates: start: 20150331
  9. ACETAMINOPHEN. [Concomitant]
     Active Substance: ACETAMINOPHEN
     Indication: PREMEDICATION
     Route: 048
     Dates: start: 20150331
  10. RITUXAN [Suspect]
     Active Substance: RITUXIMAB
     Indication: MONONEUROPATHY MULTIPLEX
     Dosage: FREQUENCY:  DAY 1 AND DAY 15
     Route: 042
     Dates: start: 20150331
  11. CYCLOPHOSPHAMIDE. [Concomitant]
     Active Substance: CYCLOPHOSPHAMIDE
  12. AMITRIPTYLINE [Concomitant]
     Active Substance: AMITRIPTYLINE
  13. PENTAMIDINE [Concomitant]
     Active Substance: PENTAMIDINE
  14. PREDNISONE. [Concomitant]
     Active Substance: PREDNISONE

REACTIONS (5)
  - Foot fracture [Unknown]
  - Foot deformity [Unknown]
  - Fall [Unknown]
  - Fatigue [Unknown]
  - Off label use [Unknown]

NARRATIVE: CASE EVENT DATE: 20150331
